FAERS Safety Report 5598696-4 (Version None)
Quarter: 2008Q1

REPORT INFORMATION
  Report Type: 
  Country: None (occurrence: None)
  Receive Date: 20080117
  Receipt Date: 20080104
  Transmission Date: 20080703
  Serious: Yes (Hospitalization)
  Sender: FDA-Public Use
  Company Number: E2090-00350-SPO-DE

PATIENT
  Age: 35 Year
  Sex: Female

DRUGS (5)
  1. ZONEGRAN [Suspect]
     Dosage: 400 MG, 2 IN 1 D, ORAL; SEVERAL, ORAL
     Route: 048
     Dates: end: 20071120
  2. ZONEGRAN [Suspect]
     Dosage: 400 MG, 2 IN 1 D, ORAL; SEVERAL, ORAL
     Route: 048
     Dates: start: 20071121, end: 20071126
  3. TOPAMAX [Suspect]
     Dosage: 400 MG, 2 IN 1 D, ORAL; SEVERAL, ORAL
     Route: 048
     Dates: end: 20071120
  4. TOPAMAX [Suspect]
     Dosage: 400 MG, 2 IN 1 D, ORAL; SEVERAL, ORAL
     Route: 048
     Dates: start: 20071121, end: 20071126
  5. PHENYTOIN [Concomitant]

REACTIONS (4)
  - COMA [None]
  - EPILEPSY [None]
  - NERVOUS SYSTEM DISORDER [None]
  - OVERDOSE [None]
